FAERS Safety Report 5322800-6 (Version None)
Quarter: 2007Q2

REPORT INFORMATION
  Report Type: 
  Country: None (occurrence: None)
  Receive Date: 20070511
  Receipt Date: 20070507
  Transmission Date: 20071010
  Serious: Yes (Death, Hospitalization, Other)
  Sender: FDA-Public Use
  Company Number: JP-PFIZER INC-2007031706

PATIENT
  Sex: Male
  Weight: 40.6 kg

DRUGS (4)
  1. ZYVOX [Suspect]
     Indication: PNEUMONIA STAPHYLOCOCCAL
     Route: 042
     Dates: start: 20070418, end: 20070419
  2. NORADRENALINE [Concomitant]
     Dosage: DAILY DOSE:4.3MG
     Route: 042
     Dates: start: 20070405
  3. INOVAN [Concomitant]
     Dosage: DAILY DOSE:18MG
     Route: 042
  4. GENTACIN [Concomitant]
     Route: 042
     Dates: start: 20070412, end: 20070417

REACTIONS (2)
  - CONVULSION [None]
  - RENAL FAILURE ACUTE [None]
